FAERS Safety Report 13638484 (Version 2)
Quarter: 2017Q2

REPORT INFORMATION
  Report Type: Spontaneous
  Country: CN (occurrence: CN)
  Receive Date: 20170609
  Receipt Date: 20170630
  Transmission Date: 20170830
  Serious: Yes (Hospitalization)
  Sender: FDA-Public Use
  Company Number: CN-FRESENIUS KABI-FK201704935

PATIENT
  Age: 41 Year
  Sex: Male
  Weight: 46.7 kg

DRUGS (10)
  1. KUHUANG INJECTION [Concomitant]
     Indication: DRUG THERAPY
  2. MIDAZOLAM [Suspect]
     Active Substance: MIDAZOLAM HYDROCHLORIDE
     Indication: SEDATION
     Route: 040
  3. COENZYME COMPLEX FOR INJECTION [Concomitant]
     Indication: DRUG THERAPY
  4. MIDAZOLAM [Suspect]
     Active Substance: MIDAZOLAM HYDROCHLORIDE
     Route: 041
  5. DIAZEPAM. [Concomitant]
     Active Substance: DIAZEPAM
     Indication: ALCOHOL WITHDRAWAL SYNDROME
  6. POLYENE PHOSPHATIDYL CHOLINE INJECTION [Concomitant]
     Indication: DRUG THERAPY
  7. GLYCYRRHIZIN [Concomitant]
     Active Substance: GLYCYRRHIZIN
     Indication: DRUG THERAPY
  8. PROPOFOL 1% (MANUFACTURER UNKNOWN) [Suspect]
     Active Substance: PROPOFOL
     Route: 042
  9. NALOXONE HYDROCHLORIDE INJECTION [Concomitant]
     Indication: ALCOHOL WITHDRAWAL SYNDROME
     Route: 041
  10. PROPOFOL 1% (MANUFACTURER UNKNOWN) [Suspect]
     Active Substance: PROPOFOL
     Indication: SEDATION
     Route: 042

REACTIONS (4)
  - Blood pressure decreased [Recovering/Resolving]
  - Heart rate decreased [Recovering/Resolving]
  - Cyanosis [Recovering/Resolving]
  - Seizure [Recovering/Resolving]
